FAERS Safety Report 7321665-0 (Version None)
Quarter: 2011Q1

REPORT INFORMATION
  Report Type: 
  Country: None (occurrence: None)
  Receive Date: 20110228
  Receipt Date: 20101210
  Transmission Date: 20110831
  Serious: No
  Sender: FDA-Public Use
  Company Number: A0899326A

PATIENT
  Age: 58 Year
  Sex: Female

DRUGS (7)
  1. CALCIUM [Concomitant]
  2. VALTREX [Suspect]
     Indication: GENITAL HERPES
     Dosage: 500MG THREE TIMES PER DAY
     Route: 048
     Dates: start: 20050101
  3. CREAM [Concomitant]
  4. UNKNOWN DRUG FOR ANXIETY [Concomitant]
  5. FOLIC ACID [Concomitant]
  6. DEPO [Concomitant]
  7. ANTIHYPERTENSIVE [Concomitant]

REACTIONS (3)
  - DRUG INEFFECTIVE [None]
  - DRUG EXPOSURE DURING PREGNANCY [None]
  - EXPIRED DRUG ADMINISTERED [None]
